FAERS Safety Report 6359852-0 (Version None)
Quarter: 2009Q3

REPORT INFORMATION
  Report Type: 
  Country: None (occurrence: None)
  Receive Date: 20090917
  Receipt Date: 20090909
  Transmission Date: 20100115
  Serious: Yes (Hospitalization)
  Sender: FDA-Public Use
  Company Number: B0590044A

PATIENT
  Sex: Male

DRUGS (7)
  1. FORTUM [Suspect]
     Indication: ANTIBIOTIC THERAPY
     Dosage: 3G TWICE PER DAY
     Route: 042
     Dates: start: 20070718, end: 20070725
  2. TARGOCID [Concomitant]
     Indication: ANTIBIOTIC THERAPY
     Dates: start: 20070718
  3. AMIKLIN [Concomitant]
     Indication: ANTIBIOTIC THERAPY
     Dates: start: 20070718
  4. FLAGYL [Concomitant]
     Dates: start: 20070719
  5. CANCIDAS [Concomitant]
     Dates: start: 20070719
  6. ZECLAR [Concomitant]
     Dates: start: 20070719
  7. BACTRIM [Concomitant]
     Dates: start: 20070719

REACTIONS (2)
  - RASH MACULO-PAPULAR [None]
  - TOXIC SKIN ERUPTION [None]
